FAERS Safety Report 25231801 (Version 1)
Quarter: 2025Q2

REPORT INFORMATION
  Report Type: Spontaneous
  Country: NL (occurrence: NL)
  Receive Date: 20250423
  Receipt Date: 20250423
  Transmission Date: 20250717
  Serious: Yes (Other)
  Sender: MYLAN
  Company Number: None

PATIENT
  Age: 27 Year
  Sex: Female
  Weight: 62 kg

DRUGS (4)
  1. SERTRALINE HYDROCHLORIDE [Suspect]
     Active Substance: SERTRALINE HYDROCHLORIDE
     Indication: Anxiety
     Dosage: 50 MILLIGRAM, QD (1X PER DAY 1 PIECE)
     Dates: start: 20250314, end: 20250331
  2. SERTRALINE HYDROCHLORIDE [Suspect]
     Active Substance: SERTRALINE HYDROCHLORIDE
     Indication: Affective disorder
     Dosage: 50 MILLIGRAM, QD (1X PER DAY 1 PIECE)
     Route: 048
     Dates: start: 20250314, end: 20250331
  3. SERTRALINE HYDROCHLORIDE [Suspect]
     Active Substance: SERTRALINE HYDROCHLORIDE
     Dosage: 50 MILLIGRAM, QD (1X PER DAY 1 PIECE)
     Route: 048
     Dates: start: 20250314, end: 20250331
  4. SERTRALINE HYDROCHLORIDE [Suspect]
     Active Substance: SERTRALINE HYDROCHLORIDE
     Dosage: 50 MILLIGRAM, QD (1X PER DAY 1 PIECE)
     Dates: start: 20250314, end: 20250331

REACTIONS (2)
  - Foetal hypokinesia [Recovered/Resolved]
  - Maternal exposure during pregnancy [Unknown]
